FAERS Safety Report 25544861 (Version 1)
Quarter: 2025Q3

REPORT INFORMATION
  Report Type: Spontaneous
  Country: US (occurrence: US)
  Receive Date: 20250711
  Receipt Date: 20250711
  Transmission Date: 20251021
  Serious: Yes (Hospitalization, Other)
  Sender: AMGEN
  Company Number: US-AMGEN-USASP2025132675

PATIENT
  Age: 2 Year
  Sex: Female
  Weight: 12 kg

DRUGS (2)
  1. RITUXIMAB [Suspect]
     Active Substance: RITUXIMAB
     Indication: Renal transplant
     Route: 065
  2. Immunoglobulin [Concomitant]
     Route: 040

REACTIONS (5)
  - Gastroenteritis sapovirus [Unknown]
  - Gastroenteritis Escherichia coli [Unknown]
  - COVID-19 [Unknown]
  - Off label use [Unknown]
  - Dehydration [Unknown]
